FAERS Safety Report 11244077 (Version 1)
Quarter: 2015Q3

REPORT INFORMATION
  Report Type: Spontaneous
  Country: US (occurrence: US)
  Receive Date: 20150707
  Receipt Date: 20150707
  Transmission Date: 20151125
  Serious: No
  Sender: FDA-Public Use
  Company Number: US-PFIZER INC-2015221076

PATIENT
  Age: 39 Year
  Sex: Female
  Weight: 73 kg

DRUGS (2)
  1. ADVIL PM [Suspect]
     Active Substance: DIPHENHYDRAMINE CITRATE\IBUPROFEN
     Indication: INSOMNIA
  2. ADVIL PM [Suspect]
     Active Substance: DIPHENHYDRAMINE CITRATE\IBUPROFEN
     Indication: HEADACHE
     Dosage: [IBUPROFEN 200MG]/[DIPHENHYDRAMINE 38MG] 1 CAPLET, NO MORE THAN 2 CAPLETS IN24 HOUR PERIOD
     Route: 048
     Dates: start: 201506

REACTIONS (2)
  - Drug effect incomplete [Unknown]
  - Drug ineffective [Not Recovered/Not Resolved]
